FAERS Safety Report 5254494-2 (Version None)
Quarter: 2007Q1

REPORT INFORMATION
  Report Type: 
  Country: None (occurrence: None)
  Receive Date: 20070302
  Receipt Date: 20070219
  Transmission Date: 20070707
  Serious: Yes (Hospitalization, Disabling, Other)
  Sender: FDA-Public Use
  Company Number: US-PFIZER INC-2006154030

PATIENT
  Sex: Female

DRUGS (13)
  1. GEODON [Suspect]
     Indication: DYSPHORIA
     Dates: start: 20070101, end: 20070101
  2. GEODON [Suspect]
     Indication: MANIA
  3. LITHIUM CARBONATE [Suspect]
     Indication: DYSPHORIA
     Dosage: DAILY DOSE:900MG
     Dates: start: 20070101, end: 20070101
  4. LITHIUM CARBONATE [Suspect]
     Indication: MANIA
  5. ZOLOFT [Suspect]
  6. WELLBUTRIN [Suspect]
     Dates: start: 20070101, end: 20070101
  7. CLARITIN [Concomitant]
  8. ATENOLOL [Concomitant]
  9. HYDROCHLOROTHIAZIDE [Concomitant]
  10. PROTONIX [Concomitant]
  11. LEXAPRO [Concomitant]
  12. LISINOPRIL [Concomitant]
  13. MIRAPEX [Concomitant]

REACTIONS (44)
  - AFFECTIVE DISORDER [None]
  - AGITATION [None]
  - ANXIETY [None]
  - ARTHRITIS [None]
  - ASTHMA [None]
  - BIPOLAR DISORDER [None]
  - BLOOD CREATINE PHOSPHOKINASE INCREASED [None]
  - BLOOD GLUCOSE INCREASED [None]
  - BLOOD UREA INCREASED [None]
  - CATHETERISATION CARDIAC [None]
  - CHRONIC SINUSITIS [None]
  - CONDUCTION DISORDER [None]
  - CYSTITIS [None]
  - DELUSION [None]
  - DEPRESSION [None]
  - DIARRHOEA [None]
  - DRUG LEVEL INCREASED [None]
  - DRUG SCREEN POSITIVE [None]
  - DYSPHONIA [None]
  - FEELING ABNORMAL [None]
  - HALLUCINATION, AUDITORY [None]
  - HYPERTENSION [None]
  - HYPOMANIA [None]
  - IMPAIRED WORK ABILITY [None]
  - IMPULSE-CONTROL DISORDER [None]
  - LIPIDS ABNORMAL [None]
  - MANIA [None]
  - MENTAL IMPAIRMENT [None]
  - MULTIPLE ALLERGIES [None]
  - MYALGIA [None]
  - NEUROLEPTIC MALIGNANT SYNDROME [None]
  - OEDEMA [None]
  - OVERDOSE [None]
  - PARANOIA [None]
  - PSYCHOTIC DISORDER [None]
  - RESTLESS LEGS SYNDROME [None]
  - SINUS DISORDER [None]
  - SUICIDE ATTEMPT [None]
  - SYNCOPE [None]
  - TACHYCARDIA [None]
  - TENDERNESS [None]
  - VENTRICULAR EXTRASYSTOLES [None]
  - WEIGHT DECREASED [None]
  - WEIGHT INCREASED [None]
